FAERS Safety Report 10932816 (Version 1)
Quarter: 2015Q1

REPORT INFORMATION
  Report Type: Spontaneous
  Country: IN (occurrence: IN)
  Receive Date: 20150320
  Receipt Date: 20150320
  Transmission Date: 20150721
  Serious: Yes (Hospitalization)
  Sender: FDA-Public Use
  Company Number: IN-009507513-1503IND009141

PATIENT
  Sex: Female
  Weight: 100 kg

DRUGS (1)
  1. JANUVIA [Suspect]
     Active Substance: SITAGLIPTIN PHOSPHATE
     Indication: DIABETES MELLITUS
     Dosage: 1 DF, QD(STRENGTH: 100, UNIT UNKNOWN)
     Route: 048

REACTIONS (2)
  - Spinal cord disorder [Recovering/Resolving]
  - Blood glucose increased [Recovering/Resolving]
